FAERS Safety Report 6041506-1 (Version None)
Quarter: 2009Q1

REPORT INFORMATION
  Report Type: 
  Country: None (occurrence: None)
  Receive Date: 20090116
  Receipt Date: 20081021
  Transmission Date: 20090719
  Serious: No
  Sender: FDA-Public Use
  Company Number: US-BRISTOL-MYERS SQUIBB COMPANY-14377824

PATIENT
  Age: 75 Year
  Sex: Female

DRUGS (2)
  1. ABILIFY [Suspect]
     Indication: DEPRESSION
     Dosage: TAKING 2 MG
  2. PAXIL [Concomitant]

REACTIONS (4)
  - ACCIDENTAL OVERDOSE [None]
  - AGITATION [None]
  - HALLUCINATION [None]
  - WHITE BLOOD CELL COUNT DECREASED [None]
